FAERS Safety Report 17942483 (Version 1)
Quarter: 2020Q2

REPORT INFORMATION
  Report Type: Spontaneous
  Country: ES (occurrence: ES)
  Receive Date: 20200625
  Receipt Date: 20200625
  Transmission Date: 20200714
  Serious: Yes (Other)
  Sender: FDA-Public Use
  Company Number: ES-AUROBINDO-AUR-APL-2020-030522

PATIENT
  Age: 48 Year

DRUGS (7)
  1. FLUOROURACIL. [Suspect]
     Active Substance: FLUOROURACIL
     Indication: ADENOCARCINOMA OF COLON
     Dosage: 1 DOSAGE FORM (1 TOTAL)
     Route: 065
     Dates: start: 20200508
  2. OXALIPLATIN. [Suspect]
     Active Substance: OXALIPLATIN
     Indication: ADENOCARCINOMA OF COLON
     Dosage: 1 DOSAGE FORM (1 TOTAL)
     Route: 065
     Dates: start: 20200508
  3. MEROPENEM HOSPIRA [Suspect]
     Active Substance: MEROPENEM
     Indication: INTESTINAL PERFORATION
     Dosage: UNK
     Route: 065
     Dates: start: 20200521
  4. PIPERACILLIN AND TAZOBACTAM [Suspect]
     Active Substance: PIPERACILLIN SODIUM\TAZOBACTAM SODIUM
     Indication: INTESTINAL PERFORATION
     Dosage: UNK
     Route: 065
     Dates: start: 20200518, end: 20200521
  5. CALCIUM FOLINATE [Suspect]
     Active Substance: LEUCOVORIN CALCIUM
     Indication: ADENOCARCINOMA OF COLON
     Dosage: 1 DOSAGE FORM (1 TOTAL)
     Route: 065
     Dates: start: 20200508
  6. CEFTRIAXONE. [Suspect]
     Active Substance: CEFTRIAXONE
     Indication: INTESTINAL PERFORATION
     Dosage: UNK
     Route: 065
     Dates: start: 20200516, end: 20200518
  7. TEICOPLANIN [Suspect]
     Active Substance: TEICOPLANIN
     Indication: INTESTINAL PERFORATION
     Dosage: UNK
     Route: 065
     Dates: start: 20200521

REACTIONS (1)
  - Toxic skin eruption [Unknown]

NARRATIVE: CASE EVENT DATE: 202005
